FAERS Safety Report 5485322-8 (Version None)
Quarter: 2007Q4

REPORT INFORMATION
  Report Type: 
  Country: None (occurrence: None)
  Receive Date: 20071010
  Receipt Date: 20071010
  Transmission Date: 20080405
  Serious: Yes (Other)
  Sender: FDA-Public Use
  Company Number: None

PATIENT
  Sex: Female
  Weight: 58.9676 kg

DRUGS (1)
  1. BONIVA [Suspect]
     Indication: OSTEOPOROSIS
     Dosage: 1   MONTHLY
     Dates: start: 20071001, end: 20071001

REACTIONS (3)
  - MUSCULOSKELETAL PAIN [None]
  - ODYNOPHAGIA [None]
  - PAIN [None]
